FAERS Safety Report 9077257 (Version 1)
Quarter: 2013Q1

REPORT INFORMATION
  Report Type: Report from Study
  Country: US (occurrence: US)
  Receive Date: 20130130
  Receipt Date: 20130130
  Transmission Date: 20140127
  Serious: No
  Sender: FDA-Public Use
  Company Number: US-ABBOTT-12P-163-0956887-00

PATIENT
  Age: 23 Year
  Sex: Female

DRUGS (5)
  1. HUMIRA 40 MG/0.8 ML PEN [Suspect]
     Indication: PSORIASIS
     Dates: start: 20120607, end: 20120724
  2. VICODIN [Concomitant]
     Indication: BACK PAIN
     Dosage: 5/500 1-2 TABLETS AS NEEDED
  3. VICODIN [Concomitant]
     Indication: NEPHROLITHIASIS
  4. PERCOCET [Concomitant]
     Indication: BACK PAIN
     Dosage: 10/650 1 AS NEEDED
  5. IBUPROFEN [Concomitant]
     Indication: BACK PAIN

REACTIONS (5)
  - Muscle twitching [Not Recovered/Not Resolved]
  - Joint injury [Not Recovered/Not Resolved]
  - Muscle spasms [Not Recovered/Not Resolved]
  - Hypoaesthesia [Not Recovered/Not Resolved]
  - Paraesthesia [Not Recovered/Not Resolved]
